FAERS Safety Report 4779120-8 (Version None)
Quarter: 2005Q3

REPORT INFORMATION
  Report Type: 
  Country: None (occurrence: None)
  Receive Date: 20050923
  Receipt Date: 20050913
  Transmission Date: 20060218
  Serious: Yes (Hospitalization, Disabling)
  Sender: FDA-Public Use
  Company Number: HQWYE431813SEP05

PATIENT
  Sex: Male

DRUGS (6)
  1. CORDARONE [Suspect]
     Indication: CARDIAC ARREST
     Dosage: 300 MG BOLUS INFUSION INTRAVENOUS; 900 MG (TO BE GIVEN OVER A 24 HOUR PERIOD)
     Route: 042
     Dates: start: 20050727, end: 20050727
  2. CORDARONE [Suspect]
     Indication: CARDIAC ARREST
     Dosage: 300 MG BOLUS INFUSION INTRAVENOUS; 900 MG (TO BE GIVEN OVER A 24 HOUR PERIOD)
     Route: 042
     Dates: start: 20050727, end: 20050728
  3. CLOPIDOGREL BISULFATE [Concomitant]
  4. LANSOPRAZOLE [Concomitant]
  5. LEVOTHYROXINE SODIUM [Concomitant]
  6. PERINDOPRIL (PERINDOPRIL) [Concomitant]

REACTIONS (7)
  - BLISTER [None]
  - DRUG ADMINISTRATION ERROR [None]
  - ERYTHEMA [None]
  - INJECTION SITE EXTRAVASATION [None]
  - SKIN DISCOLOURATION [None]
  - SKIN HYPERTROPHY [None]
  - TENDERNESS [None]
